FAERS Safety Report 22354636 (Version 6)
Quarter: 2024Q2

REPORT INFORMATION
  Report Type: Report from Study
  Country: CO (occurrence: CO)
  Receive Date: 20230523
  Receipt Date: 20240610
  Transmission Date: 20240716
  Serious: Yes (Other)
  Sender: FDA-Public Use
  Company Number: CO-002147023-NVSC2021CO030128

PATIENT
  Age: 51 Year
  Sex: Female
  Weight: 60 kg

DRUGS (6)
  1. COSENTYX [Suspect]
     Active Substance: SECUKINUMAB
     Indication: Psoriasis
     Dosage: 300 MG, QMO
     Route: 058
     Dates: start: 20200101
  2. COSENTYX [Suspect]
     Active Substance: SECUKINUMAB
     Indication: Psoriatic arthropathy
     Dosage: 300 MG, QW
     Route: 058
     Dates: start: 20200623, end: 202008
  3. COSENTYX [Suspect]
     Active Substance: SECUKINUMAB
     Dosage: 300 MG, QMO
     Route: 058
     Dates: start: 202009
  4. COSENTYX [Suspect]
     Active Substance: SECUKINUMAB
     Dosage: 300 MG, QMO
     Route: 058
  5. COSENTYX [Suspect]
     Active Substance: SECUKINUMAB
     Dosage: UNK
     Route: 065
     Dates: start: 20210903
  6. COSENTYX [Suspect]
     Active Substance: SECUKINUMAB
     Dosage: 300 MG, QMO
     Route: 058

REACTIONS (21)
  - Ulcer haemorrhage [Unknown]
  - Mouth ulceration [Unknown]
  - Loose tooth [Recovering/Resolving]
  - Oral disorder [Recovering/Resolving]
  - Arthralgia [Unknown]
  - Skin plaque [Not Recovered/Not Resolved]
  - Arthritis [Unknown]
  - Gait disturbance [Unknown]
  - Abscess oral [Unknown]
  - Pain in extremity [Unknown]
  - Nail injury [Unknown]
  - Haematoma [Unknown]
  - Oral mucosal exfoliation [Unknown]
  - Swelling [Unknown]
  - Skin lesion [Unknown]
  - Mouth haemorrhage [Recovering/Resolving]
  - Dysphonia [Recovering/Resolving]
  - Tooth loss [Recovering/Resolving]
  - Headache [Not Recovered/Not Resolved]
  - Ill-defined disorder [Unknown]
  - Scab [Unknown]

NARRATIVE: CASE EVENT DATE: 20200623
